FAERS Safety Report 5859554-0 (Version None)
Quarter: 2008Q3

REPORT INFORMATION
  Report Type: 
  Country: None (occurrence: None)
  Receive Date: 20080827
  Receipt Date: 20080821
  Transmission Date: 20090109
  Serious: Yes (Death, Hospitalization)
  Sender: FDA-Public Use
  Company Number: A0744591A

PATIENT
  Age: 55 Year
  Sex: Male
  Weight: 104.5 kg

DRUGS (8)
  1. AVANDIA [Suspect]
     Dosage: 4MG PER DAY
     Route: 048
     Dates: start: 20050730, end: 20071201
  2. AMARYL [Concomitant]
     Dates: start: 20060625, end: 20070419
  3. TOPROL-XL [Concomitant]
  4. COREG [Concomitant]
  5. NITROSTAT [Concomitant]
     Dates: start: 20060324
  6. CELEBREX [Concomitant]
     Dates: start: 20000615, end: 20060101
  7. VYTORIN [Concomitant]
     Dates: start: 20060304
  8. ISOSORBIDE [Concomitant]
     Dates: start: 20060304

REACTIONS (2)
  - MYOCARDIAL INFARCTION [None]
  - MYOCARDIAL ISCHAEMIA [None]
